FAERS Safety Report 6320502-0 (Version None)
Quarter: 2009Q3

REPORT INFORMATION
  Report Type: 
  Country: None (occurrence: None)
  Receive Date: 20090822
  Receipt Date: 20081110
  Transmission Date: 20100115
  Serious: No
  Sender: FDA-Public Use
  Company Number: US-ABBOTT-08P-163-0487110-00

PATIENT
  Sex: Male
  Weight: 79.45 kg

DRUGS (12)
  1. NIASPAN [Suspect]
     Indication: HIGH DENSITY LIPOPROTEIN DECREASED
     Dates: start: 20080501
  2. NIASPAN [Suspect]
     Dates: start: 20080901
  3. FAMOPIDINE [Concomitant]
     Indication: GASTRIC DISORDER
  4. PENTOSAN POLYSULFATE SODIUM [Concomitant]
     Indication: BLADDER DISORDER
     Dosage: 100MG, ONE TO TWO TIMES DAILY
  5. ASPIRIN [Concomitant]
     Indication: CARDIAC DISORDER
  6. ATENOLOL [Concomitant]
     Indication: BLOOD PRESSURE
  7. PIOGLITAZONE [Concomitant]
     Indication: BLOOD GLUCOSE ABNORMAL
     Dosage: 30 DAILY
  8. PRAVASTATIN [Concomitant]
     Indication: BLOOD CHOLESTEROL
  9. FEXOFENDADINE [Concomitant]
     Indication: HYPERSENSITIVITY
  10. FISH OIL [Concomitant]
     Indication: BLOOD CHOLESTEROL
  11. MULTI-VITAMIN [Concomitant]
     Indication: DRUG USE FOR UNKNOWN INDICATION
  12. GLUSOSAMINE CHONDROITIN [Concomitant]
     Indication: DRUG USE FOR UNKNOWN INDICATION

REACTIONS (1)
  - HIGH DENSITY LIPOPROTEIN DECREASED [None]
